FAERS Safety Report 7602226-2 (Version None)
Quarter: 2011Q3

REPORT INFORMATION
  Report Type: 
  Country: None (occurrence: None)
  Receive Date: 20110711
  Receipt Date: 20110705
  Transmission Date: 20111222
  Serious: Yes (Hospitalization)
  Sender: FDA-Public Use
  Company Number: JP-ABBOTT-10P-087-0681758-00

PATIENT
  Sex: Male
  Weight: 65 kg

DRUGS (8)
  1. ATAZANAVIR SULFATE [Suspect]
     Indication: HIV INFECTION
     Route: 048
     Dates: start: 20050401, end: 20090707
  2. TRUVADA [Concomitant]
     Indication: HIV INFECTION
     Route: 048
     Dates: start: 20090708
  3. RECOMBINATE [Concomitant]
     Indication: HAEMOPHILIA
     Dates: start: 20060401, end: 20070720
  4. ADVATE [Concomitant]
     Indication: HAEMOPHILIA
     Dates: start: 20070721
  5. NORVIR [Suspect]
     Indication: HIV INFECTION
     Route: 048
     Dates: start: 20040712
  6. TENOFOVIR DISOPROXIL FUMARATE [Suspect]
     Indication: HIV INFECTION
     Route: 048
     Dates: start: 20040712, end: 20090707
  7. FOSAMPRENAVIR CALCIUM HYDRATE [Concomitant]
     Indication: HIV INFECTION
     Route: 048
     Dates: start: 20090708
  8. LAMIVUDINE [Suspect]
     Indication: HIV INFECTION
     Route: 048
     Dates: start: 20050401, end: 20090707

REACTIONS (3)
  - HAEMORRHAGE [None]
  - GASTROOESOPHAGEAL REFLUX DISEASE [None]
  - GASTRIC ULCER [None]
